FAERS Safety Report 9897129 (Version 1)
Quarter: 2014Q1

REPORT INFORMATION
  Report Type: Spontaneous
  Country: CA (occurrence: CA)
  Receive Date: 20140214
  Receipt Date: 20140214
  Transmission Date: 20141002
  Serious: Yes (Hospitalization, Disabling)
  Sender: FDA-Public Use
  Company Number: CA-ROCHE-1348585

PATIENT
  Age: 22 Year
  Sex: Female

DRUGS (5)
  1. XOLAIR [Suspect]
     Indication: ASTHMA
     Route: 058
     Dates: start: 20100826
  2. SYMBICORT [Concomitant]
  3. VENTOLIN [Concomitant]
  4. SINGULAIR [Concomitant]
  5. REACTINE (CANADA) [Concomitant]

REACTIONS (4)
  - Hyperemesis gravidarum [Recovered/Resolved]
  - Complication of pregnancy [Recovered/Resolved]
  - Dehydration [Unknown]
  - Maternal exposure during pregnancy [Unknown]
